FAERS Safety Report 22585364 (Version 2)
Quarter: 2023Q2

REPORT INFORMATION
  Report Type: Spontaneous
  Country: PL (occurrence: PL)
  Receive Date: 20230610
  Receipt Date: 20230612
  Transmission Date: 20230722
  Serious: Yes (Hospitalization)
  Sender: FDA-Public Use
  Company Number: PL-MYLANLABS-2023M1059703

PATIENT
  Age: 31 Year
  Sex: Female

DRUGS (6)
  1. IMIQUIMOD [Suspect]
     Active Substance: IMIQUIMOD
     Indication: Skin papilloma
     Dosage: UNK
     Route: 061
  2. FLUOROURACIL [Suspect]
     Active Substance: FLUOROURACIL
     Indication: Skin papilloma
     Dosage: UNK
     Route: 061
  3. PODOFILOX [Concomitant]
     Active Substance: PODOFILOX
     Indication: Skin papilloma
     Dosage: UNK
     Route: 061
  4. TRETINOIN [Concomitant]
     Active Substance: TRETINOIN
     Indication: Skin papilloma
     Dosage: UNK
     Route: 061
  5. ISOPRINOSINE [Concomitant]
     Active Substance: INOSINE PRANOBEX
     Indication: Skin papilloma
     Dosage: UNK
     Route: 065
  6. ISOTRETINOIN [Concomitant]
     Active Substance: ISOTRETINOIN
     Indication: Skin papilloma
     Dosage: 0.5 MILLIGRAM/KILOGRAM, QD
     Route: 048

REACTIONS (2)
  - Hospitalisation [Unknown]
  - Drug ineffective [Unknown]
